FAERS Safety Report 9234669 (Version 1)
Quarter: 2013Q2

REPORT INFORMATION
  Report Type: Spontaneous
  Country: JP (occurrence: JP)
  Receive Date: 20130416
  Receipt Date: 20130416
  Transmission Date: 20140414
  Serious: Yes (Other)
  Sender: FDA-Public Use
  Company Number: JP-ASTRAZENECA-2013SE24783

PATIENT
  Age: 69 Year
  Sex: Male

DRUGS (6)
  1. ECARD COMBINATION TABLETS HD [Suspect]
     Indication: HYPERTENSION
     Route: 048
     Dates: start: 20130123, end: 20130329
  2. OHNES ST [Concomitant]
     Route: 048
     Dates: end: 20130326
  3. LOXONIN [Concomitant]
     Route: 048
     Dates: end: 20130326
  4. PARULEON [Concomitant]
     Route: 048
     Dates: end: 20130326
  5. GASMOTIN [Concomitant]
     Route: 048
     Dates: end: 20130326
  6. NORVASC [Concomitant]
     Route: 048

REACTIONS (1)
  - Rhabdomyolysis [Recovered/Resolved]
